FAERS Safety Report 5610424-2 (Version None)
Quarter: 2008Q1

REPORT INFORMATION
  Report Type: 
  Country: None (occurrence: None)
  Receive Date: 20080128
  Receipt Date: 20080116
  Transmission Date: 20080703
  Serious: Yes (Hospitalization)
  Sender: FDA-Public Use
  Company Number: 230561J08USA

PATIENT
  Age: 41 Year
  Weight: 76.6579 kg

DRUGS (5)
  1. REBIF [Suspect]
     Indication: MULTIPLE SCLEROSIS
     Dosage: 22 MCG, 3 IN 1 WEEKS, SUBCUTANEOUS
     Route: 059
     Dates: start: 20050914, end: 20080103
  2. REBIF [Suspect]
     Indication: MULTIPLE SCLEROSIS
     Dosage: 22 MCG, 3 IN 1 WEEKS, SUBCUTANEOUS
     Route: 059
     Dates: start: 20080110
  3. ZOLOFT [Concomitant]
  4. FOSAMAX [Concomitant]
  5. CALCIUM (CALCIUM-SANDOZ /00009901/) [Concomitant]

REACTIONS (5)
  - CHOLELITHIASIS [None]
  - HYPOAESTHESIA [None]
  - NASOPHARYNGITIS [None]
  - POST PROCEDURAL COMPLICATION [None]
  - RESPIRATORY TRACT INFECTION [None]
